FAERS Safety Report 22002528 (Version 1)
Quarter: 2023Q1

REPORT INFORMATION
  Report Type: Spontaneous
  Country: US (occurrence: US)
  Receive Date: 20230217
  Receipt Date: 20230217
  Transmission Date: 20230418
  Serious: No
  Sender: FDA-Public Use
  Company Number: US-VALIDUS PHARMACEUTICALS LLC-US-VDP-2022-015740

PATIENT

DRUGS (4)
  1. LASIX [Suspect]
     Active Substance: FUROSEMIDE
     Indication: Oedema
     Dosage: UNK
     Route: 065
     Dates: start: 2022
  2. TORSEMIDE [Suspect]
     Active Substance: TORSEMIDE
     Indication: Oedema
     Dosage: UNK
     Route: 065
     Dates: start: 2022
  3. SPIRONOLACTONE [Suspect]
     Active Substance: SPIRONOLACTONE
     Indication: Oedema
     Dosage: UNK
     Route: 065
     Dates: start: 2022
  4. ASCORBIC ACID [Concomitant]
     Active Substance: ASCORBIC ACID
     Indication: Immune enhancement therapy
     Dosage: UNK, QD
     Route: 065

REACTIONS (5)
  - Drug ineffective [Unknown]
  - Gastrointestinal motility disorder [Unknown]
  - Product quality issue [Unknown]
  - Hypoglycaemia [Unknown]
  - Vomiting [Unknown]
